FAERS Safety Report 9836828 (Version 1)
Quarter: 2014Q1

REPORT INFORMATION
  Report Type: Spontaneous
  Country: US (occurrence: None)
  Receive Date: 20140116
  Receipt Date: 20140116
  Transmission Date: 20141002
  Serious: Yes (Life-Threatening, Hospitalization)
  Sender: FDA-Public Use
  Company Number: None

PATIENT
  Age: 87 Year
  Sex: Male

DRUGS (6)
  1. ZYTIGA [Suspect]
     Indication: PROSTATE CANCER
     Route: 048
     Dates: start: 20130306, end: 20140115
  2. PREDNISONE [Concomitant]
  3. ASPIRIN [Concomitant]
  4. B12 [Concomitant]
  5. CALCIUM [Concomitant]
  6. FOSAMAX [Concomitant]

REACTIONS (2)
  - Syncope [None]
  - Atrial fibrillation [None]
